FAERS Safety Report 5874827-3 (Version None)
Quarter: 2008Q3

REPORT INFORMATION
  Report Type: 
  Country: None (occurrence: None)
  Receive Date: 20080908
  Receipt Date: 20080908
  Transmission Date: 20090109
  Serious: Yes (Life-Threatening, Hospitalization)
  Sender: FDA-Public Use
  Company Number: None

PATIENT
  Sex: Female

DRUGS (2)
  1. HYDROCODONE BITARTRATE [Suspect]
  2. HYDROMORPHONE HCL [Suspect]

REACTIONS (2)
  - CARDIO-RESPIRATORY ARREST [None]
  - RESPIRATORY FAILURE [None]
